FAERS Safety Report 23989901 (Version 2)
Quarter: 2024Q3

REPORT INFORMATION
  Report Type: Spontaneous
  Country: FR (occurrence: FR)
  Receive Date: 20240619
  Receipt Date: 20240702
  Transmission Date: 20241017
  Serious: Yes (Hospitalization, Other)
  Sender: PFIZER
  Company Number: None

PATIENT
  Age: 78 Year
  Sex: Male
  Weight: 77 kg

DRUGS (14)
  1. RITUXIMAB [Suspect]
     Active Substance: RITUXIMAB
     Indication: Non-Hodgkin^s lymphoma
     Dosage: 540 MG
     Route: 042
     Dates: start: 20240308, end: 20240308
  2. RITUXIMAB [Suspect]
     Active Substance: RITUXIMAB
     Dosage: 735 MG
     Route: 042
     Dates: start: 20240309, end: 20240309
  3. RITUXIMAB [Suspect]
     Active Substance: RITUXIMAB
     Dosage: 195 MG
     Route: 042
     Dates: start: 20240307, end: 20240307
  4. BENDAMUSTINE HYDROCHLORIDE MONOHYDRATE [Suspect]
     Active Substance: BENDAMUSTINE HYDROCHLORIDE MONOHYDRATE
     Indication: Non-Hodgkin^s lymphoma
     Dosage: 175 MG
     Route: 042
     Dates: start: 20240413, end: 20240413
  5. BENDAMUSTINE HYDROCHLORIDE MONOHYDRATE [Suspect]
     Active Substance: BENDAMUSTINE HYDROCHLORIDE MONOHYDRATE
     Dosage: 175 MG
     Route: 042
     Dates: start: 20240412, end: 20240412
  6. BENDAMUSTINE HYDROCHLORIDE MONOHYDRATE [Suspect]
     Active Substance: BENDAMUSTINE HYDROCHLORIDE MONOHYDRATE
     Dosage: 175 MG
     Route: 042
     Dates: start: 20240409, end: 20240409
  7. BENDAMUSTINE HYDROCHLORIDE MONOHYDRATE [Suspect]
     Active Substance: BENDAMUSTINE HYDROCHLORIDE MONOHYDRATE
     Dosage: 170 MG
     Route: 042
     Dates: start: 20240410, end: 20240410
  8. ASCORBATE DE CALCIUM RICHARD [CALCIUM ASCORBATE] [Concomitant]
     Indication: Mineral supplementation
     Dosage: 500 MG, 1X/DAY
     Route: 048
  9. CHOLECALCIFEROL [Concomitant]
     Active Substance: CHOLECALCIFEROL
     Indication: Vitamin supplementation
     Dosage: 1 DF, EVERY 3 MONTHS
     Route: 048
  10. ACETAMINOPHEN [Concomitant]
     Active Substance: ACETAMINOPHEN
     Indication: Pain
     Dosage: 1 G
     Route: 048
  11. LERCANIDIPINE HYDROCHLORIDE [Concomitant]
     Active Substance: LERCANIDIPINE HYDROCHLORIDE
     Indication: Hypertension
     Dosage: 10 MG, 1X/DAY
     Route: 048
  12. JANUVIA [Concomitant]
     Active Substance: SITAGLIPTIN PHOSPHATE
     Indication: Type 2 diabetes mellitus
     Dosage: 50 MG, 1X/DAY
     Route: 048
  13. BACTRIM [Concomitant]
     Active Substance: SULFAMETHOXAZOLE\TRIMETHOPRIM
     Indication: Opportunistic infection prophylaxis
     Dosage: 1 DF, ALTERNATE DAY
     Route: 048
  14. VALACYCLOVIR HYDROCHLORIDE [Concomitant]
     Active Substance: VALACYCLOVIR HYDROCHLORIDE
     Indication: Antiviral prophylaxis
     Dosage: FREQ:12 H;
     Route: 048

REACTIONS (3)
  - Colitis [Recovering/Resolving]
  - Nausea [Recovered/Resolved]
  - Hypomagnesaemia [Recovering/Resolving]

NARRATIVE: CASE EVENT DATE: 20240410
